FAERS Safety Report 18347356 (Version 1)
Quarter: 2020Q4

REPORT INFORMATION
  Report Type: Spontaneous
  Country: CN (occurrence: CN)
  Receive Date: 20201005
  Receipt Date: 20201005
  Transmission Date: 20210114
  Serious: Yes (Hospitalization, Other)
  Sender: FDA-Public Use
  Company Number: CN-ELI_LILLY_AND_COMPANY-CN202009010922

PATIENT
  Age: 39 Year
  Sex: Male

DRUGS (3)
  1. GEMCITABINE HYDROCHLORIDE. [Suspect]
     Active Substance: GEMCITABINE HYDROCHLORIDE
     Indication: PANCREATIC NEOPLASM
     Dosage: 2000 MG, CYCLICAL
     Route: 041
     Dates: start: 20200722, end: 20200903
  2. XELODA [Suspect]
     Active Substance: CAPECITABINE
     Indication: PANCREATIC NEOPLASM
     Dosage: 2500 MG, BID
     Route: 048
     Dates: start: 20200722, end: 20200908
  3. SODIUM CHLORIDE. [Concomitant]
     Active Substance: SODIUM CHLORIDE
     Indication: PANCREATIC NEOPLASM
     Dosage: 500 ML, CYCLICAL
     Route: 041
     Dates: start: 20200722, end: 20200902

REACTIONS (10)
  - Pigmentation disorder [Unknown]
  - Skin wound [Unknown]
  - Skin exfoliation [Unknown]
  - Asthenia [Unknown]
  - Pruritus [Unknown]
  - Blood pressure increased [Unknown]
  - Diarrhoea [Unknown]
  - Rash [Unknown]
  - Mouth ulceration [Unknown]
  - Off label use [Unknown]

NARRATIVE: CASE EVENT DATE: 202009
